FAERS Safety Report 6102169-X (Version None)
Quarter: 2009Q1

REPORT INFORMATION
  Report Type: 
  Country: None (occurrence: None)
  Receive Date: 20090304
  Receipt Date: 20090224
  Transmission Date: 20090719
  Serious: Yes (Hospitalization)
  Sender: FDA-Public Use
  Company Number: US-BIOGENIDEC-2009BI005881

PATIENT
  Age: 59 Year
  Sex: Female
  Weight: 49 kg

DRUGS (4)
  1. AVONEX [Suspect]
     Indication: MULTIPLE SCLEROSIS
     Route: 030
     Dates: start: 20010101, end: 20030101
  2. AVONEX [Suspect]
     Route: 030
     Dates: start: 20030101, end: 20081001
  3. AVONEX [Suspect]
     Route: 030
     Dates: start: 20081001, end: 20081201
  4. AVONEX [Suspect]
     Route: 030
     Dates: start: 20090101

REACTIONS (3)
  - BLOOD POTASSIUM DECREASED [None]
  - BRONCHITIS [None]
  - COUGH [None]
